FAERS Safety Report 18522874 (Version 1)
Quarter: 2020Q4

REPORT INFORMATION
  Report Type: Spontaneous
  Country: US (occurrence: US)
  Receive Date: 20201119
  Receipt Date: 20201119
  Transmission Date: 20210114
  Serious: Yes (Hospitalization)
  Sender: FDA-Public Use
  Company Number: US-MYLANLABS-2020M1095149

PATIENT
  Age: 12 Year
  Sex: Male
  Weight: 32 kg

DRUGS (3)
  1. CLONIDINE. [Suspect]
     Active Substance: CLONIDINE
     Indication: AUTISM SPECTRUM DISORDER
     Dosage: 0.2 MILLIGRAM, QD 2.2 ML OF CLONIDINE 0.09 MG/ML EVERY NIGHT
     Route: 065
  2. BUSPIRONE [Concomitant]
     Active Substance: BUSPIRONE HYDROCHLORIDE
     Indication: AUTISM SPECTRUM DISORDER
     Dosage: 10.5 ML OF 5 MG/ML EACH MORNING
     Route: 065
  3. CLONIDINE. [Suspect]
     Active Substance: CLONIDINE
     Dosage: 1.58 MILLIGRAM, QD 0.72 MG/ML EVERY NIGHT (OVERDOSE)
     Route: 065

REACTIONS (9)
  - Somnolence [Recovered/Resolved]
  - Toxicity to various agents [Recovered/Resolved]
  - Overdose [Recovered/Resolved]
  - Product preparation error [Recovered/Resolved]
  - Sinus bradycardia [Recovered/Resolved]
  - Sedation [Recovered/Resolved]
  - Hypotension [Recovered/Resolved]
  - Off label use [Unknown]
  - Miosis [Recovered/Resolved]
